FAERS Safety Report 8834849 (Version 1)
Quarter: 2012Q4

REPORT INFORMATION
  Report Type: Spontaneous
  Country: None (occurrence: None)
  Receive Date: 20121009
  Receipt Date: 20121009
  Transmission Date: 20130627
  Serious: Yes (Hospitalization)
  Sender: FDA-Public Use
  Company Number: AUR-APL-2012-04268

PATIENT
  Age: 47 Year
  Sex: Female

DRUGS (5)
  1. ZOLPIDEM [Suspect]
     Indication: INSOMNIA
  2. LORAZEPAM (LORAZEPAM) [Suspect]
     Indication: INSOMNIA
  3. ALPRAZOLAM [Suspect]
     Indication: INSOMNIA
  4. CLONAZEPAM [Suspect]
     Indication: INSOMNIA
  5. RAMELTEON [Suspect]
     Indication: INSOMNIA

REACTIONS (7)
  - Intentional drug misuse [None]
  - Drug effect decreased [None]
  - Euphoric mood [None]
  - Anxiety [None]
  - Depression [None]
  - Insomnia [None]
  - Borderline personality disorder [None]
